FAERS Safety Report 9353012 (Version 1)
Quarter: 2013Q2

REPORT INFORMATION
  Report Type: Spontaneous
  Country: US (occurrence: US)
  Receive Date: 20130618
  Receipt Date: 20130618
  Transmission Date: 20140414
  Serious: Yes (Hospitalization)
  Sender: FDA-Public Use
  Company Number: US-PERRIGO-13US006170

PATIENT
  Age: 73 Year
  Sex: Female

DRUGS (4)
  1. PROCHLORPERAZINE [Suspect]
     Indication: NAUSEA
     Dosage: UNK
     Route: 065
  2. PROCHLORPERAZINE [Suspect]
     Indication: VOMITING
  3. SERTRALINE [Suspect]
     Indication: DEPRESSION
     Dosage: UNK
     Route: 065
  4. IFOSFAMIDE [Concomitant]
     Indication: NEOPLASM MALIGNANT
     Dosage: UNK
     Route: 065

REACTIONS (8)
  - Serotonin syndrome [Recovered/Resolved]
  - Delirium [Recovered/Resolved]
  - Unresponsive to stimuli [Recovered/Resolved]
  - Clonus [Recovered/Resolved]
  - Dystonia [Recovered/Resolved]
  - Hypertension [Recovered/Resolved]
  - Pyrexia [Recovered/Resolved]
  - Tachycardia [Recovered/Resolved]
